FAERS Safety Report 11871188 (Version 4)
Quarter: 2017Q2

REPORT INFORMATION
  Report Type: Report from Study
  Country: US (occurrence: US)
  Receive Date: 20151228
  Receipt Date: 20170420
  Transmission Date: 20170829
  Serious: Yes (Hospitalization)
  Sender: FDA-Public Use
  Company Number: US-JNJFOC-20151219806

PATIENT
  Age: 66 Year
  Sex: Female
  Weight: 79.83 kg

DRUGS (3)
  1. DURAGESIC [Suspect]
     Active Substance: FENTANYL
     Indication: PAIN
     Route: 062
  2. PLAVIX [Concomitant]
     Active Substance: CLOPIDOGREL BISULFATE
     Indication: ANTICOAGULANT THERAPY
     Route: 048
  3. PLAVIX [Concomitant]
     Active Substance: CLOPIDOGREL BISULFATE
     Indication: ANTICOAGULANT THERAPY
     Route: 048
     Dates: end: 20160106

REACTIONS (5)
  - Withdrawal syndrome [Unknown]
  - Hospitalisation [Unknown]
  - Gait disturbance [Unknown]
  - Poor peripheral circulation [Unknown]
  - Pain [Unknown]

NARRATIVE: CASE EVENT DATE: 20151217
